FAERS Safety Report 11921927 (Version 1)
Quarter: 2016Q1

REPORT INFORMATION
  Report Type: Not Available
  Country: US (occurrence: US)
  Receive Date: 20160115
  Receipt Date: 20160115
  Transmission Date: 20160526
  Serious: Yes (Other)
  Sender: FDA-Public Use
  Company Number: US-ANIPHARMA-2016-US-000086

PATIENT
  Age: 24 Year
  Sex: Female

DRUGS (1)
  1. OXCARBAZEPINE (NON-SPECIFIC) [Suspect]
     Active Substance: OXCARBAZEPINE

REACTIONS (4)
  - Dysphagia [None]
  - Hypotension [None]
  - Drug reaction with eosinophilia and systemic symptoms [Unknown]
  - Transaminases increased [None]
